FAERS Safety Report 4386534-7 (Version None)
Quarter: 2004Q2

REPORT INFORMATION
  Report Type: 
  Country: None (occurrence: None)
  Receive Date: 20040629
  Receipt Date: 20040624
  Transmission Date: 20050107
  Serious: Yes (Other)
  Sender: FDA-Public Use
  Company Number: 200414847US

PATIENT
  Sex: Female
  Weight: 69 kg

DRUGS (4)
  1. LOVENOX [Suspect]
     Indication: DEEP VEIN THROMBOSIS
     Dosage: DOSE: 80-90
     Route: 058
  2. LOVENOX [Suspect]
     Indication: DISEASE RECURRENCE
     Dosage: DOSE: 80-90
     Route: 058
  3. TACROLIMUS [Concomitant]
     Dosage: DOSE: NOT PROVIDED
  4. UNKNOWN DRUG [Concomitant]
     Dosage: DOSE: NOT PROVIDED

REACTIONS (3)
  - NEUTROPENIA [None]
  - PLATELET COUNT DECREASED [None]
  - WHITE BLOOD CELL COUNT DECREASED [None]
